FAERS Safety Report 21894397 (Version 1)
Quarter: 2023Q1

REPORT INFORMATION
  Report Type: Spontaneous
  Country: BR (occurrence: BR)
  Receive Date: 20230121
  Receipt Date: 20230121
  Transmission Date: 20230417
  Serious: Yes (Death, Other)
  Sender: FDA-Public Use
  Company Number: BR-AUROBINDO-AUR-APL-2022-052826

PATIENT
  Sex: Male

DRUGS (1)
  1. BELEODAQ [Suspect]
     Active Substance: BELINOSTAT
     Indication: Product used for unknown indication
     Dosage: UNK
     Route: 065

REACTIONS (1)
  - Death [Fatal]
